FAERS Safety Report 24850295 (Version 4)
Quarter: 2025Q3

REPORT INFORMATION
  Report Type: Spontaneous
  Country: US (occurrence: US)
  Receive Date: 20250116
  Receipt Date: 20250918
  Transmission Date: 20251021
  Serious: No
  Sender: PFIZER
  Company Number: US-PFIZER INC-202400330000

PATIENT
  Age: 48 Year
  Sex: Female

DRUGS (4)
  1. TUKYSA [Suspect]
     Active Substance: TUCATINIB
     Dosage: 200 MG (ONE 150 MG TABLET TO BE IN COMBO WITH ONE 50 MG TABLET), 2X/DAY (Q12H)
     Route: 048
  2. TUKYSA [Suspect]
     Active Substance: TUCATINIB
     Dosage: 250 MG (ONE 150 MG TABLET AND TWO 50 MG TABLETS),2X/DAY
     Route: 048
  3. TUKYSA [Suspect]
     Active Substance: TUCATINIB
     Dosage: 250 MG TWICE DAILY (50 MG AND 150 MG)
  4. XELODA [Suspect]
     Active Substance: CAPECITABINE

REACTIONS (3)
  - Illness [Recovering/Resolving]
  - Off label use [Unknown]
  - Product use issue [Unknown]

NARRATIVE: CASE EVENT DATE: 20241201
